FAERS Safety Report 10996160 (Version 1)
Quarter: 2015Q2

REPORT INFORMATION
  Report Type: Other
  Country: IT (occurrence: IT)
  Receive Date: 20150407
  Receipt Date: 20150407
  Transmission Date: 20150821
  Serious: Yes (Other)
  Sender: FDA-Public Use
  Company Number: IT-MYLANLABS-2015M1004578

PATIENT

DRUGS (3)
  1. ACETYLCYSTEINE. [Suspect]
     Active Substance: ACETYLCYSTEINE
     Indication: COUGH
     Dosage: 1 DF, TOTAL
     Route: 048
     Dates: start: 20150105, end: 20150105
  2. RABEPRAZOLE SODIUM. [Suspect]
     Active Substance: RABEPRAZOLE SODIUM
     Indication: GASTRITIS PROPHYLAXIS
     Dosage: 1 DF, TOTAL
     Route: 048
     Dates: start: 20150105, end: 20150105
  3. AMOXICILLINA ACIDO CLAVULANICO [Suspect]
     Active Substance: AMOXICILLIN\CLAVULANIC ACID
     Indication: OROPHARYNGEAL PAIN
     Dosage: 1 DF, TOTAL
     Route: 048
     Dates: start: 20150105, end: 20150105

REACTIONS (2)
  - Peripheral swelling [Recovering/Resolving]
  - Urticaria [Recovering/Resolving]

NARRATIVE: CASE EVENT DATE: 20150105
